FAERS Safety Report 7216097-X (Version None)
Quarter: 2011Q1

REPORT INFORMATION
  Report Type: 
  Country: None (occurrence: None)
  Receive Date: 20110107
  Receipt Date: 20110104
  Transmission Date: 20110831
  Serious: Yes (Life-Threatening, Hospitalization)
  Sender: FDA-Public Use
  Company Number: FR-ASTRAZENECA-2011SE00521

PATIENT
  Age: 35 Year
  Sex: Female

DRUGS (2)
  1. DIPRIVAN [Suspect]
     Indication: ANAESTHESIA
     Route: 042
     Dates: start: 20101008, end: 20101008
  2. SUCCINYLCHOLINE CHLORIDE [Suspect]
     Indication: ANAESTHESIA
     Route: 042
     Dates: start: 20101008, end: 20101008

REACTIONS (1)
  - ANAPHYLACTIC SHOCK [None]
